FAERS Safety Report 4429871-X (Version None)
Quarter: 2004Q3

REPORT INFORMATION
  Report Type: 
  Country: None (occurrence: None)
  Receive Date: 20040816
  Receipt Date: 20040805
  Transmission Date: 20050211
  Serious: Yes (Hospitalization)
  Sender: FDA-Public Use
  Company Number: 2004048774

PATIENT
  Age: 22 Year
  Sex: Female
  Weight: 60 kg

DRUGS (4)
  1. ZITHROMAX [Suspect]
     Indication: CHILLS
     Dosage: ORAL
     Route: 048
     Dates: start: 20040211
  2. ZITHROMAX [Suspect]
     Indication: DYSPHAGIA
     Dosage: ORAL
     Route: 048
     Dates: start: 20040211
  3. ZITHROMAX [Suspect]
     Indication: PHARYNGOLARYNGEAL PAIN
     Dosage: ORAL
     Route: 048
     Dates: start: 20040211
  4. VALACYCLOVIR HCL [Suspect]
     Indication: ILL-DEFINED DISORDER
     Dosage: (1 IN 1 D), ORAL
     Route: 048
     Dates: start: 20040216

REACTIONS (14)
  - ERYTHEMA MULTIFORME [None]
  - EYE DISORDER [None]
  - HERPES VIRUS INFECTION [None]
  - INFLAMMATION [None]
  - LYMPHOPENIA [None]
  - MOUTH ULCERATION [None]
  - MUCOUS MEMBRANE DISORDER [None]
  - PAIN [None]
  - RASH PAPULAR [None]
  - STEVENS-JOHNSON SYNDROME [None]
  - STOMATITIS [None]
  - SYMBLEPHARON [None]
  - VULVAR EROSION [None]
  - WHITE BLOOD CELL COUNT INCREASED [None]
